FAERS Safety Report 21286470 (Version 2)
Quarter: 2022Q4

REPORT INFORMATION
  Report Type: Report from Study
  Country: BR (occurrence: BR)
  Receive Date: 20220902
  Receipt Date: 20221110
  Transmission Date: 20230113
  Serious: Yes (Other)
  Sender: FDA-Public Use
  Company Number: BR-NOVARTISPH-NVSC2022BR042360

PATIENT
  Age: 55 Year
  Sex: Female
  Weight: 65 kg

DRUGS (1)
  1. COSENTYX [Suspect]
     Active Substance: SECUKINUMAB
     Indication: Ankylosing spondylitis
     Dosage: 150 MG, QMO (1 APPLICATION PER MONTH)
     Route: 058
     Dates: start: 20220224

REACTIONS (9)
  - Ankylosing spondylitis [Not Recovered/Not Resolved]
  - Pain in extremity [Not Recovered/Not Resolved]
  - Peripheral swelling [Not Recovered/Not Resolved]
  - Inflammation [Not Recovered/Not Resolved]
  - Drug ineffective [Not Recovered/Not Resolved]
  - Device defective [Unknown]
  - Abdominal pain upper [Recovered/Resolved]
  - Product prescribing error [Not Recovered/Not Resolved]
  - Incorrect dose administered by device [Recovered/Resolved]

NARRATIVE: CASE EVENT DATE: 20220224
